FAERS Safety Report 8546363-7 (Version None)
Quarter: 2012Q3

REPORT INFORMATION
  Report Type: 
  Country: None (occurrence: None)
  Receive Date: 20120727
  Receipt Date: 20111219
  Transmission Date: 20120928
  Serious: No
  Sender: FDA-Public Use
  Company Number: US-ASTRAZENECA-2011SE77247

PATIENT
  Sex: Female

DRUGS (2)
  1. SEROQUEL [Suspect]
     Route: 048
  2. SEROQUEL [Suspect]
     Route: 048

REACTIONS (8)
  - CRYING [None]
  - INSOMNIA [None]
  - MANIA [None]
  - DRUG DOSE OMISSION [None]
  - ANXIETY [None]
  - NERVOUSNESS [None]
  - AFFECT LABILITY [None]
  - MALAISE [None]
